FAERS Safety Report 9688768 (Version 1)
Quarter: 2013Q4

REPORT INFORMATION
  Report Type: Spontaneous
  Country: US (occurrence: US)
  Receive Date: 20131114
  Receipt Date: 20131114
  Transmission Date: 20140711
  Serious: Yes (Other)
  Sender: FDA-Public Use
  Company Number: US-PFIZER INC-2013320879

PATIENT
  Sex: Male

DRUGS (1)
  1. PREPARATION H [Suspect]
     Dosage: UNK
     Dates: start: 20131106

REACTIONS (2)
  - Rectal haemorrhage [Unknown]
  - Rectal discharge [Unknown]
